FAERS Safety Report 6693875-7 (Version None)
Quarter: 2010Q2

REPORT INFORMATION
  Report Type: 
  Country: None (occurrence: None)
  Receive Date: 20100423
  Receipt Date: 20100414
  Transmission Date: 20101027
  Serious: Yes (Other)
  Sender: FDA-Public Use
  Company Number: PHHY2009DE53045

PATIENT
  Age: 69 Year
  Sex: Female

DRUGS (3)
  1. PROVAS [Suspect]
     Dosage: 160 MG
     Route: 048
  2. METOPROLOL SUCCINATE [Concomitant]
     Dosage: 95 MG
  3. TORSEMIDE [Concomitant]

REACTIONS (3)
  - CARDIAC DISORDER [None]
  - CARDIOSPASM [None]
  - MYALGIA [None]
